FAERS Safety Report 9979256 (Version 1)
Quarter: 2014Q1

REPORT INFORMATION
  Report Type: Report from Study
  Country: US (occurrence: US)
  Receive Date: 20140306
  Receipt Date: 20140306
  Transmission Date: 20141002
  Serious: No
  Sender: FDA-Public Use
  Company Number: US-ABBVIE-13P-163-1173682-00

PATIENT
  Sex: Female
  Weight: 63.56 kg

DRUGS (8)
  1. HUMIRA [Suspect]
     Indication: COLITIS ULCERATIVE
     Route: 058
     Dates: start: 201307, end: 201310
  2. LIALDA [Concomitant]
     Indication: COLITIS ULCERATIVE
  3. APRISO [Concomitant]
     Indication: COLITIS ULCERATIVE
  4. CANASA [Concomitant]
     Indication: COLITIS ULCERATIVE
  5. PREDNISONE [Concomitant]
     Indication: COLITIS ULCERATIVE
  6. ALLERGY SHOTS [Concomitant]
     Indication: HYPERSENSITIVITY
     Route: 058
  7. XOLAIR [Concomitant]
     Indication: ASTHMA
  8. SYMBICORT [Concomitant]
     Indication: ASTHMA

REACTIONS (1)
  - Drug ineffective [Not Recovered/Not Resolved]
